FAERS Safety Report 25942387 (Version 2)
Quarter: 2025Q4

REPORT INFORMATION
  Report Type: Spontaneous
  Country: EU (occurrence: EU)
  Receive Date: 20251021
  Receipt Date: 20251217
  Transmission Date: 20260117
  Serious: Yes (Other)
  Sender: ABBVIE
  Company Number: EU-ABBVIE-6510197

PATIENT
  Age: 62 Year
  Sex: Male

DRUGS (2)
  1. OZURDEX [Suspect]
     Active Substance: DEXAMETHASONE
     Indication: Product used for unknown indication
     Dosage: TIME INTERVAL: AS NECESSARY: FREQUENCY: EVERY 16 WEEKS, PERIOD BETWEEN USE OF THE PRODUCT?AND ONS...
     Route: 050
     Dates: start: 20191030
  2. OZURDEX [Suspect]
     Active Substance: DEXAMETHASONE
     Dosage: TIME INTERVAL: AS NECESSARY: PERIOD BETWEEN USE OF THE PRODUCT AND ONSET OF THE ADVERSE EVENT WAS...
     Route: 050
     Dates: start: 20160713

REACTIONS (2)
  - Myopia [Recovered/Resolved]
  - Cataract [Recovered/Resolved]

NARRATIVE: CASE EVENT DATE: 20191220
